FAERS Safety Report 13354457 (Version 1)
Quarter: 2017Q1

REPORT INFORMATION
  Report Type: Report from Study
  Country: US (occurrence: US)
  Receive Date: 20170321
  Receipt Date: 20170321
  Transmission Date: 20170429
  Serious: Yes (Other)
  Sender: FDA-Public Use
  Company Number: US-EISAI MEDICAL RESEARCH-EC-2016-020493

PATIENT
  Age: 46 Year
  Sex: Female
  Weight: 55.2 kg

DRUGS (17)
  1. POLYETHYLENE GLYCOL [Concomitant]
     Active Substance: POLYETHYLENE GLYCOLS
  2. DOCUSATE [Concomitant]
     Active Substance: DOCUSATE
  3. LOMOTIL [Concomitant]
     Active Substance: ATROPINE SULFATE\DIPHENOXYLATE HYDROCHLORIDE
  4. SENNA TEA [Concomitant]
  5. LENVATINIB [Suspect]
     Active Substance: LENVATINIB
     Indication: MALIGNANT MELANOMA
     Route: 048
     Dates: start: 20160128, end: 20160913
  6. IBUPROFEN. [Concomitant]
     Active Substance: IBUPROFEN
  7. PEMBROLIZUMAB. [Suspect]
     Active Substance: PEMBROLIZUMAB
     Indication: MALIGNANT MELANOMA
     Route: 041
     Dates: start: 20160128, end: 20160824
  8. IMODIUM [Concomitant]
     Active Substance: LOPERAMIDE HYDROCHLORIDE
  9. DULCOLAX NOS [Concomitant]
     Active Substance: BISACODYL OR DOCUSATE SODIUM
  10. PRILOSEC [Concomitant]
     Active Substance: OMEPRAZOLE MAGNESIUM
  11. LEVOTHYROXINE. [Concomitant]
     Active Substance: LEVOTHYROXINE
  12. DIAZEPAM. [Concomitant]
     Active Substance: DIAZEPAM
  13. ONDANSETRON [Concomitant]
     Active Substance: ONDANSETRON
  14. GLYCERIN SUPPOSITORY [Concomitant]
     Active Substance: GLYCERIN
  15. LENVATINIB [Suspect]
     Active Substance: LENVATINIB
     Route: 048
     Dates: start: 20161003
  16. LENVATINIB [Suspect]
     Active Substance: LENVATINIB
     Route: 048
  17. PEMBROLIZUMAB. [Suspect]
     Active Substance: PEMBROLIZUMAB
     Route: 041
     Dates: start: 20161003

REACTIONS (2)
  - Pancreatitis [Recovered/Resolved]
  - Cholecystitis [Recovered/Resolved]

NARRATIVE: CASE EVENT DATE: 20160909
